FAERS Safety Report 17734711 (Version 1)
Quarter: 2020Q2

REPORT INFORMATION
  Report Type: Spontaneous
  Country: CA (occurrence: CA)
  Receive Date: 20200501
  Receipt Date: 20200501
  Transmission Date: 20200714
  Serious: Yes (Other)
  Sender: FDA-Public Use
  Company Number: CA-BAYER-2020-068507

PATIENT
  Age: 49 Year
  Sex: Male

DRUGS (4)
  1. BRILINTA [Concomitant]
     Active Substance: TICAGRELOR
  2. ASPIRIN [ACETYLSALICYLIC ACID] [Concomitant]
     Active Substance: ASPIRIN
  3. CIPRO [Suspect]
     Active Substance: CIPROFLOXACIN HYDROCHLORIDE
     Indication: URINARY TRACT INFECTION
     Dosage: 500 MG, QD
     Route: 048
  4. CRESTOR [Concomitant]
     Active Substance: ROSUVASTATIN CALCIUM

REACTIONS (7)
  - Lethargy [None]
  - Neuralgia [None]
  - Paraesthesia [None]
  - Fatigue [None]
  - Chest pain [None]
  - Dizziness [None]
  - Impaired quality of life [None]
